FAERS Safety Report 8600659 (Version 3)
Quarter: 2013Q1

REPORT INFORMATION
  Report Type: Spontaneous
  Country: US (occurrence: US)
  Receive Date: 20120606
  Receipt Date: 20121218
  Transmission Date: 20140127
  Serious: Yes (Other)
  Sender: FDA-Public Use
  Company Number: PHEH2012US005000

PATIENT
  Age: 73 Year
  Sex: Male

DRUGS (1)
  1. ZOMETA (ZOLEDRONATE) SOLUTION FOR INJECTION [Suspect]
     Indication: PROSTATE CANCER
     Route: 042
     Dates: start: 20110627, end: 201202

REACTIONS (6)
  - Osteonecrosis of jaw [Unknown]
  - Pain in jaw [Not Recovered/Not Resolved]
  - Bone lesion [Unknown]
  - Headache [Recovered/Resolved]
  - Tooth loss [Not Recovered/Not Resolved]
  - Pain [Unknown]
